FAERS Safety Report 4867809-1 (Version None)
Quarter: 2005Q4

REPORT INFORMATION
  Report Type: 
  Country: None (occurrence: None)
  Receive Date: 20051227
  Receipt Date: 20051227
  Transmission Date: 20060501
  Serious: Yes (Disabling)
  Sender: FDA-Public Use
  Company Number: None

PATIENT
  Sex: Female
  Weight: 87.9978 kg

DRUGS (2)
  1. OXYCONTIN [Suspect]
     Indication: BACK PAIN
     Dosage: PO 5 X DAILY
     Route: 048
  2. OXYCONTIN [Suspect]
     Indication: COCCYDYNIA
     Dosage: PO 5 X DAILY
     Route: 048

REACTIONS (3)
  - INADEQUATE ANALGESIA [None]
  - NAUSEA [None]
  - UNEVALUABLE EVENT [None]
